FAERS Safety Report 6166771-1 (Version None)
Quarter: 2009Q2

REPORT INFORMATION
  Report Type: 
  Country: None (occurrence: None)
  Receive Date: 20090424
  Receipt Date: 20090114
  Transmission Date: 20091009
  Serious: Yes (Hospitalization)
  Sender: FDA-Public Use
  Company Number: SE-PFIZER INC-2009156827

PATIENT

DRUGS (13)
  1. BLINDED *PLACEBO [Suspect]
     Indication: CARDIAC FAILURE
     Dosage: UNK
     Dates: start: 20080130
  2. BLINDED EPLERENONE [Suspect]
     Indication: CARDIAC FAILURE
     Dosage: UNK
     Dates: start: 20080130
  3. WARFARIN SODIUM [Concomitant]
     Dosage: UNK
     Route: 048
     Dates: start: 20060228
  4. FUROSEMIDE [Concomitant]
     Dosage: UNK
     Route: 048
     Dates: start: 20060228
  5. METOPROLOL [Concomitant]
     Dosage: UNK
     Route: 048
     Dates: start: 20060228
  6. METOPROLOL [Concomitant]
     Route: 048
     Dates: start: 20060228
  7. ENALAPRIL [Concomitant]
     Dosage: UNK
     Route: 048
     Dates: start: 20071203
  8. ENALAPRIL [Concomitant]
     Route: 048
     Dates: start: 20071203
  9. SIMVASTATIN [Concomitant]
     Dosage: UNK
     Route: 048
     Dates: start: 20070218
  10. NOVONORM [Concomitant]
     Dosage: UNK
     Route: 048
     Dates: start: 20070612
  11. CORDARONE [Concomitant]
     Dosage: UNK
     Route: 048
     Dates: start: 20081124
  12. CLOPIDOGREL [Concomitant]
     Dosage: UNK
     Route: 048
     Dates: start: 20081124
  13. AMIODARONE HCL [Concomitant]
     Dosage: UNK
     Route: 048
     Dates: start: 20081124

REACTIONS (1)
  - ASTHENIA [None]
